FAERS Safety Report 5141591-5 (Version None)
Quarter: 2006Q4

REPORT INFORMATION
  Report Type: 
  Country: None (occurrence: None)
  Receive Date: 20061030
  Receipt Date: 20061030
  Transmission Date: 20070319
  Serious: Yes (Other)
  Sender: FDA-Public Use
  Company Number: None

PATIENT
  Age: 56 Year
  Sex: Male
  Weight: 94.3482 kg

DRUGS (2)
  1. FENOFIBRATE [Suspect]
     Indication: HYPERTRIGLYCERIDAEMIA
     Dosage: 160 MG 1 TAB PO QDAY PO
     Route: 048
     Dates: start: 20060725, end: 20060929
  2. OMEGA-3 FATTY ACID OTC [Suspect]
     Indication: HYPERTRIGLYCERIDAEMIA
     Dosage: ONE PILL PO QDAY PO
     Route: 048
     Dates: start: 20060725, end: 20060929

REACTIONS (1)
  - HYPOGEUSIA [None]
